FAERS Safety Report 21214767 (Version 1)
Quarter: 2022Q3

REPORT INFORMATION
  Report Type: Spontaneous
  Country: US (occurrence: US)
  Receive Date: 20220816
  Receipt Date: 20220816
  Transmission Date: 20221027
  Serious: Yes (Hospitalization, Other)
  Sender: FDA-Public Use
  Company Number: US-GBT-015157

PATIENT
  Age: 63 Year
  Sex: Male

DRUGS (1)
  1. OXBRYTA [Suspect]
     Active Substance: VOXELOTOR
     Indication: Sickle cell disease
     Dosage: ONGOING
     Route: 048
     Dates: start: 202106

REACTIONS (4)
  - Cardiac failure congestive [Unknown]
  - Product dose omission issue [Unknown]
  - Surgery [Unknown]
  - Off label use [Unknown]

NARRATIVE: CASE EVENT DATE: 20210601
